FAERS Safety Report 7809034-8 (Version None)
Quarter: 2011Q4

REPORT INFORMATION
  Report Type: 
  Country: None (occurrence: None)
  Receive Date: 20111012
  Receipt Date: 20111012
  Transmission Date: 20120403
  Serious: Yes (Other)
  Sender: FDA-Public Use
  Company Number: None

PATIENT
  Age: 38 Year
  Sex: Male
  Weight: 90.718 kg

DRUGS (1)
  1. CYMBALTA [Suspect]
     Indication: INTERVERTEBRAL DISC PROTRUSION
     Dosage: ONCE

REACTIONS (5)
  - MOOD SWINGS [None]
  - DIZZINESS [None]
  - INSOMNIA [None]
  - UNEVALUABLE EVENT [None]
  - NAUSEA [None]
